FAERS Safety Report 20849254 (Version 2)
Quarter: 2022Q2

REPORT INFORMATION
  Report Type: Spontaneous
  Country: US (occurrence: US)
  Receive Date: 20220519
  Receipt Date: 20220601
  Transmission Date: 20220720
  Serious: Yes (Death, Hospitalization)
  Sender: FDA-Public Use
  Company Number: US-TEVA-2022-US-2037102

PATIENT
  Age: 22 Year
  Sex: Male

DRUGS (9)
  1. DOXORUBICIN [Suspect]
     Active Substance: DOXORUBICIN
     Indication: Acute lymphocytic leukaemia recurrent
     Route: 065
  2. METHOTREXATE [Suspect]
     Active Substance: METHOTREXATE
     Indication: Acute lymphocytic leukaemia recurrent
     Route: 065
  3. PREDNISONE [Suspect]
     Active Substance: PREDNISONE
     Indication: Acute lymphocytic leukaemia recurrent
     Route: 065
  4. VINCRISTINE [Suspect]
     Active Substance: VINCRISTINE
     Indication: Acute lymphocytic leukaemia recurrent
     Route: 065
  5. CYTARABINE [Suspect]
     Active Substance: CYTARABINE
     Indication: Acute lymphocytic leukaemia recurrent
     Route: 065
  6. CLOFARABINE [Suspect]
     Active Substance: CLOFARABINE
     Indication: Acute lymphocytic leukaemia recurrent
     Route: 065
  7. CYCLOPHOSPHAMIDE [Suspect]
     Active Substance: CYCLOPHOSPHAMIDE
     Indication: Acute lymphocytic leukaemia recurrent
     Route: 065
  8. MICAFUNGIN [Suspect]
     Active Substance: MICAFUNGIN
     Indication: Antifungal prophylaxis
     Route: 065
  9. POSACONAZOLE [Suspect]
     Active Substance: POSACONAZOLE
     Indication: Antifungal prophylaxis
     Route: 065

REACTIONS (7)
  - Sinusitis fungal [Fatal]
  - Aspergillus infection [Fatal]
  - Hepatotoxicity [Unknown]
  - Haemodynamic instability [Recovered/Resolved]
  - Septic shock [Recovered/Resolved]
  - Hypovolaemia [Recovered/Resolved]
  - Drug ineffective [Unknown]
